FAERS Safety Report 25535548 (Version 1)
Quarter: 2025Q3

REPORT INFORMATION
  Report Type: Spontaneous
  Country: US (occurrence: US)
  Receive Date: 20250709
  Receipt Date: 20250709
  Transmission Date: 20251021
  Serious: No
  Sender: BOTANIX PHARMACEUTICALS
  Company Number: US-BOTANIX PHARMACEUTICALS-2025BOT00195

PATIENT

DRUGS (1)
  1. SOFDRA [Suspect]
     Active Substance: SOFPIRONIUM BROMIDE

REACTIONS (4)
  - Fatigue [Unknown]
  - Vision blurred [Unknown]
  - Dry mouth [Unknown]
  - Headache [Unknown]
